FAERS Safety Report 25425624 (Version 2)
Quarter: 2025Q2

REPORT INFORMATION
  Report Type: Report from Study
  Country: US (occurrence: US)
  Receive Date: 20250611
  Receipt Date: 20250616
  Transmission Date: 20250717
  Serious: No
  Sender: ABBVIE
  Company Number: US-ABBVIE-6316298

PATIENT
  Age: 75 Year
  Sex: Male

DRUGS (1)
  1. SKYRIZI [Suspect]
     Active Substance: RISANKIZUMAB-RZAA
     Indication: Colitis ulcerative
     Route: 042
     Dates: start: 20250404

REACTIONS (4)
  - Urethral stenosis [Recovering/Resolving]
  - Haemorrhage urinary tract [Unknown]
  - Calculus urinary [Unknown]
  - Dysuria [Unknown]

NARRATIVE: CASE EVENT DATE: 20250101
